FAERS Safety Report 22627697 (Version 1)
Quarter: 2023Q2

REPORT INFORMATION
  Report Type: Spontaneous
  Country: IT (occurrence: IT)
  Receive Date: 20230622
  Receipt Date: 20230622
  Transmission Date: 20230722
  Serious: Yes (Other)
  Sender: FDA-Public Use
  Company Number: None

PATIENT
  Age: 55 Year
  Sex: Female

DRUGS (1)
  1. IMRALDI [Suspect]
     Active Substance: ADALIMUMAB
     Indication: Psoriatic arthropathy
     Route: 058
     Dates: start: 20200515, end: 20200723

REACTIONS (2)
  - Psoriatic arthropathy [Recovered/Resolved]
  - Therapeutic response changed [Recovered/Resolved]

NARRATIVE: CASE EVENT DATE: 20200515
